FAERS Safety Report 6249323-4 (Version None)
Quarter: 2009Q2

REPORT INFORMATION
  Report Type: 
  Country: None (occurrence: None)
  Receive Date: 20090629
  Receipt Date: 20090626
  Transmission Date: 20091009
  Serious: Yes (Other)
  Sender: FDA-Public Use
  Company Number: A0776307A

PATIENT
  Age: 29 Year
  Sex: Male

DRUGS (2)
  1. NICODERM CQ [Suspect]
     Indication: SMOKING CESSATION THERAPY
     Route: 062
     Dates: start: 20090328, end: 20090329
  2. LAMICTAL [Concomitant]
     Indication: EPILEPSY

REACTIONS (8)
  - ARRHYTHMIA [None]
  - ASTHENIA [None]
  - DIZZINESS [None]
  - HEART RATE IRREGULAR [None]
  - INSOMNIA [None]
  - NAUSEA [None]
  - PALPITATIONS [None]
  - TOBACCO POISONING [None]
